FAERS Safety Report 7203916-6 (Version None)
Quarter: 2010Q4

REPORT INFORMATION
  Report Type: 
  Country: None (occurrence: None)
  Receive Date: 20101220
  Receipt Date: 20101209
  Transmission Date: 20110411
  Serious: Yes (Other)
  Sender: FDA-Public Use
  Company Number: VER-2010-01091

PATIENT
  Age: 75 Year
  Sex: Female
  Weight: 81.6475 kg

DRUGS (4)
  1. CYCLOSET [Suspect]
     Indication: DIABETES MELLITUS
     Dosage: 1.6 MG (1.6 MG, 1 IN 1 D), ORAL
     Route: 048
     Dates: start: 20101101
  2. TEKTURNA (ALISKIREN FUMARATE) [Concomitant]
  3. JANUVIA [Concomitant]
  4. CRESTOR [Concomitant]

REACTIONS (1)
  - SYNCOPE [None]
